FAERS Safety Report 15075412 (Version 1)
Quarter: 2018Q2

REPORT INFORMATION
  Report Type: Spontaneous
  Country: US (occurrence: US)
  Receive Date: 20180627
  Receipt Date: 20180627
  Transmission Date: 20180711
  Serious: Yes (Death)
  Sender: FDA-Public Use
  Company Number: US-SAOL THERAPEUTICS-2018SAO00470

PATIENT
  Age: 56 Year

DRUGS (2)
  1. BACLOFEN. [Suspect]
     Active Substance: BACLOFEN
     Indication: URINARY TRACT DISORDER
     Dosage: 550 ?G, \DAY
     Route: 037
     Dates: start: 20171222
  2. BACLOFEN. [Suspect]
     Active Substance: BACLOFEN
     Indication: MUSCLE SPASTICITY

REACTIONS (1)
  - Death [Fatal]

NARRATIVE: CASE EVENT DATE: 20180401
